FAERS Safety Report 14600153 (Version 1)
Quarter: 2018Q1

REPORT INFORMATION
  Report Type: Spontaneous
  Country: IT (occurrence: IT)
  Receive Date: 20180305
  Receipt Date: 20180305
  Transmission Date: 20180509
  Serious: Yes (Hospitalization, Other)
  Sender: FDA-Public Use
  Company Number: IT-GLAXOSMITHKLINE-IT2018031611

PATIENT
  Age: 45 Year
  Sex: Male

DRUGS (10)
  1. TALOFEN [Concomitant]
     Active Substance: PROMAZINE HYDROCHLORIDE
     Indication: PRODUCT USED FOR UNKNOWN INDICATION
     Dosage: 4 GM/100 MLM -30ML BOTTLE SOLUTIONS
     Route: 048
  2. LAMIVUDINE. [Suspect]
     Active Substance: LAMIVUDINE
     Indication: HIV INFECTION
     Dosage: UNK
     Route: 065
  3. NORVIR [Suspect]
     Active Substance: RITONAVIR
     Indication: HIV INFECTION
     Dosage: 100 MG BOTTLE (HDPE)-30 TABLETS
     Route: 048
  4. DAKLINZA [Suspect]
     Active Substance: DACLATASVIR
     Indication: HEPATITIS C
     Dosage: 30 MG BLISTER PACK (PVC/PCTFE/AL)-28 TABLETS
     Route: 048
     Dates: start: 20150603, end: 20150722
  5. COPEGUS [Suspect]
     Active Substance: RIBAVIRIN
     Dosage: 200 MG -42 TABLETS IN A BOTTLE
     Route: 048
     Dates: start: 20150603, end: 20150827
  6. COPEGUS [Suspect]
     Active Substance: RIBAVIRIN
     Indication: HEPATITIS C
     Dosage: UNK
     Route: 065
  7. REYATAZ [Suspect]
     Active Substance: ATAZANAVIR SULFATE
     Indication: HIV INFECTION
     Dosage: 300 MG BOTTLE (HIGH DENSITY POLYETHYLENE) 30 CAPSULES
     Route: 048
     Dates: start: 20091007, end: 20150722
  8. KIVEXA [Suspect]
     Active Substance: ABACAVIR SULFATE\LAMIVUDINE
     Indication: HIV INFECTION
     Dosage: 30X300+600 MG TABLETS IN PVC/PVDC/AL BLISTER PACK
     Route: 048
  9. SOVALDI [Suspect]
     Active Substance: SOFOSBUVIR
     Indication: HEPATITIS C
     Dosage: 60 MG, UNK
     Route: 065
  10. SOVALDI [Suspect]
     Active Substance: SOFOSBUVIR
     Dosage: 400 MG BOTTLE (HDPE)- 28 TABLETS
     Route: 048

REACTIONS (4)
  - Hyperbilirubinaemia [Recovering/Resolving]
  - Haemoglobin decreased [Not Recovered/Not Resolved]
  - Nephrolithiasis [Recovered/Resolved]
  - Cholelithiasis [Recovered/Resolved]
